FAERS Safety Report 12496990 (Version 1)
Quarter: 2016Q2

REPORT INFORMATION
  Report Type: Spontaneous
  Country: US (occurrence: US)
  Receive Date: 20160624
  Receipt Date: 20160624
  Transmission Date: 20160815
  Serious: Yes (Other)
  Sender: FDA-Public Use
  Company Number: US-TEVA-669089USA

PATIENT
  Age: 25 Year
  Sex: Female

DRUGS (1)
  1. ZECUITY [Suspect]
     Active Substance: SUMATRIPTAN SUCCINATE
     Dosage: 6.5 MG OVER 4 HOURS
     Route: 062
     Dates: start: 201605

REACTIONS (7)
  - Application site vesicles [Unknown]
  - Application site burn [Unknown]
  - Application site paraesthesia [Unknown]
  - Application site discolouration [Not Recovered/Not Resolved]
  - Application site erythema [Unknown]
  - Application site warmth [Unknown]
  - Dry skin [Unknown]

NARRATIVE: CASE EVENT DATE: 201605
